FAERS Safety Report 14741163 (Version 1)
Quarter: 2018Q2

REPORT INFORMATION
  Report Type: Spontaneous
  Country: JP (occurrence: JP)
  Receive Date: 20180410
  Receipt Date: 20180410
  Transmission Date: 20180711
  Serious: Yes (Hospitalization, Other)
  Sender: FDA-Public Use
  Company Number: JP-TEVA-2018-JP-879456

PATIENT
  Age: 55 Year
  Sex: Male

DRUGS (3)
  1. TACROLIMUS. [Suspect]
     Active Substance: TACROLIMUS
     Indication: IMMUNOSUPPRESSANT DRUG THERAPY
     Route: 065
  2. MYCOPHENOLATE [Suspect]
     Active Substance: MYCOPHENOLIC ACID
     Indication: IMMUNOSUPPRESSANT DRUG THERAPY
     Route: 065
  3. HYDROXYAPATITE [Suspect]
     Active Substance: TRIBASIC CALCIUM PHOSPHATE
     Route: 065

REACTIONS (4)
  - Staphylococcal infection [Recovered/Resolved]
  - Device related sepsis [Recovered/Resolved]
  - Chest wall abscess [Recovered/Resolved]
  - Osteomyelitis [Recovered/Resolved]
